FAERS Safety Report 12929601 (Version 2)
Quarter: 2016Q4

REPORT INFORMATION
  Report Type: Spontaneous
  Country: US (occurrence: US)
  Receive Date: 20161110
  Receipt Date: 20161215
  Transmission Date: 20170207
  Serious: Yes (Other)
  Sender: FDA-Public Use
  Company Number: US-BAYER-2016-210495

PATIENT
  Age: 53 Year
  Sex: Female

DRUGS (5)
  1. CLIMARA PRO [Suspect]
     Active Substance: ESTRADIOL\LEVONORGESTREL
     Indication: IRRITABILITY
  2. CLIMARA PRO [Suspect]
     Active Substance: ESTRADIOL\LEVONORGESTREL
     Indication: WEIGHT INCREASED
  3. CLIMARA PRO [Suspect]
     Active Substance: ESTRADIOL\LEVONORGESTREL
     Indication: MENOPAUSAL SYMPTOMS
     Dosage: UNK
     Route: 062
     Dates: start: 20161024, end: 20161028
  4. CLIMARA PRO [Suspect]
     Active Substance: ESTRADIOL\LEVONORGESTREL
     Indication: HOT FLUSH
  5. CLIMARA PRO [Suspect]
     Active Substance: ESTRADIOL\LEVONORGESTREL
     Indication: SOMNOLENCE

REACTIONS (7)
  - Uterine haemorrhage [Recovered/Resolved]
  - Application site pruritus [None]
  - Drug hypersensitivity [None]
  - Application site erythema [None]
  - Application site rash [None]
  - Application site swelling [None]
  - Scar [None]

NARRATIVE: CASE EVENT DATE: 201610
